FAERS Safety Report 5155810-2 (Version None)
Quarter: 2006Q4

REPORT INFORMATION
  Report Type: 
  Country: None (occurrence: None)
  Receive Date: 20061113
  Receipt Date: 20061103
  Transmission Date: 20070319
  Serious: Yes (Disabling)
  Sender: FDA-Public Use
  Company Number: 25630

PATIENT
  Age: 53 Year
  Sex: Male
  Weight: 107.0489 kg

DRUGS (5)
  1. NIASPAN [Suspect]
     Indication: HIGH DENSITY LIPOPROTEIN DECREASED
     Dosage: 2000 MG QHS PO
     Route: 048
     Dates: start: 20040101, end: 20060801
  2. ASPIRIN [Concomitant]
  3. OMEGA 3 [Concomitant]
  4. WELLBUTRIN [Concomitant]
  5. LOVASTATIN [Concomitant]

REACTIONS (6)
  - ARTHRALGIA [None]
  - DIABETES MELLITUS NON-INSULIN-DEPENDENT [None]
  - INTERVERTEBRAL DISC PROTRUSION [None]
  - MUSCULOSKELETAL PAIN [None]
  - MYALGIA [None]
  - NECK PAIN [None]
